FAERS Safety Report 6787427-8 (Version None)
Quarter: 2010Q2

REPORT INFORMATION
  Report Type: 
  Country: None (occurrence: None)
  Receive Date: 20100623
  Receipt Date: 20070426
  Transmission Date: 20101027
  Serious: No
  Sender: FDA-Public Use
  Company Number: US-PFIZER INC-2007031018

PATIENT
  Sex: Male
  Weight: 70.31 kg

DRUGS (7)
  1. PROVERA [Suspect]
     Indication: TRANSGENDER HORMONAL THERAPY
     Dates: start: 20060101
  2. ANTIHYPERTENSIVES [Concomitant]
  3. LITHIUM [Concomitant]
  4. VALIUM [Concomitant]
  5. DEPAKOTE [Concomitant]
  6. ESTRADIOL [Concomitant]
     Dates: start: 20060101
  7. PREMARIN [Concomitant]
     Dates: start: 20060101

REACTIONS (1)
  - AFFECT LABILITY [None]
